FAERS Safety Report 19579327 (Version 1)
Quarter: 2021Q3

REPORT INFORMATION
  Report Type: Spontaneous
  Country: RU (occurrence: RU)
  Receive Date: 20210720
  Receipt Date: 20210720
  Transmission Date: 20211014
  Serious: Yes (Other)
  Sender: FDA-Public Use
  Company Number: RU-SA-2021SA233478

PATIENT
  Age: 71 Year
  Sex: Female
  Weight: 70 kg

DRUGS (8)
  1. KEVZARA [Suspect]
     Active Substance: SARILUMAB
     Indication: COVID-19
     Dosage: 175MG / ML ? 1.14ML,PRN
     Route: 041
     Dates: start: 20210709, end: 20210709
  2. BRONCHORUS [Concomitant]
     Dosage: 30 MG, TID
     Dates: start: 20210706
  3. CONCOR [Concomitant]
     Active Substance: BISOPROLOL FUMARATE
     Dosage: 5 MG, QD,IN THE MORNING
  4. FAVIPIRAVIR [Concomitant]
     Active Substance: FAVIPIRAVIR
     Dosage: 600 MG, BID
     Route: 048
  5. ROSUVASTATIN [ROSUVASTATIN CALCIUM] [Concomitant]
     Active Substance: ROSUVASTATIN CALCIUM
     Dosage: 20 MG, QD,IN THE EVENING
  6. DALTEPARIN SODIUM [Concomitant]
     Active Substance: DALTEPARIN SODIUM
     Dosage: 5000 IU, QD
     Dates: start: 20210706
  7. DEXAMETHASONE SODIUM [Concomitant]
     Active Substance: DEXAMETHASONE
     Dosage: 20 MG, QD, IN THREE DOSES
     Dates: start: 20210708
  8. FAVIPIRAVIR [Concomitant]
     Active Substance: FAVIPIRAVIR
     Dosage: 1600 MG, BID
     Route: 048
     Dates: start: 20210706

REACTIONS (2)
  - Body temperature increased [Recovering/Resolving]
  - Nasopharyngitis [Recovering/Resolving]

NARRATIVE: CASE EVENT DATE: 20210709
